FAERS Safety Report 21482478 (Version 1)
Quarter: 2022Q4

REPORT INFORMATION
  Report Type: Spontaneous
  Country: JP (occurrence: JP)
  Receive Date: 20221020
  Receipt Date: 20221020
  Transmission Date: 20230112
  Serious: Yes (Hospitalization)
  Sender: FDA-Public Use
  Company Number: JP-TAKEDA-2022TJP075569

PATIENT
  Age: 77 Year
  Sex: Male

DRUGS (1)
  1. TRINTELLIX [Suspect]
     Active Substance: VORTIOXETINE HYDROBROMIDE
     Indication: Tinnitus
     Dosage: UNK
     Route: 048

REACTIONS (2)
  - Hospitalisation [Unknown]
  - Off label use [Unknown]
